FAERS Safety Report 10687018 (Version 1)
Quarter: 2015Q1

REPORT INFORMATION
  Report Type: Spontaneous
  Country: US (occurrence: US)
  Receive Date: 20150102
  Receipt Date: 20150102
  Transmission Date: 20150720
  Serious: Yes (Other)
  Sender: FDA-Public Use
  Company Number: US-ROCHE-1515355

PATIENT
  Age: 66 Year
  Sex: Female

DRUGS (2)
  1. RITUXAN [Suspect]
     Active Substance: RITUXIMAB
     Indication: LYMPHOMA
     Route: 042
     Dates: start: 201211, end: 201401
  2. MIRAPEX [Concomitant]
     Active Substance: PRAMIPEXOLE DIHYDROCHLORIDE

REACTIONS (4)
  - Immunodeficiency [Unknown]
  - Angina pectoris [Unknown]
  - Progressive multifocal leukoencephalopathy [Unknown]
  - Nervous system disorder [Recovered/Resolved]

NARRATIVE: CASE EVENT DATE: 201211
